FAERS Safety Report 8968874 (Version 1)
Quarter: 2012Q4

REPORT INFORMATION
  Report Type: 
  Country: DK (occurrence: DK)
  Receive Date: 20121218
  Receipt Date: 20121218
  Transmission Date: 20130627
  Serious: Yes (Hospitalization)
  Sender: FDA-Public Use
  Company Number: DK-RANBAXY-2012R1-63028

PATIENT
  Age: 61 Year
  Sex: Male

DRUGS (1)
  1. AMOXICILLIN [Suspect]
     Indication: ARTHROPOD BITE
     Dosage: 375 mg, bid
     Route: 048

REACTIONS (1)
  - Drug-induced liver injury [Recovered/Resolved]
